FAERS Safety Report 7690311-9 (Version None)
Quarter: 2011Q3

REPORT INFORMATION
  Report Type: 
  Country: None (occurrence: None)
  Receive Date: 20110818
  Receipt Date: 20110815
  Transmission Date: 20111222
  Serious: No
  Sender: FDA-Public Use
  Company Number: US-PFIZER INC-2011189373

PATIENT
  Sex: Female

DRUGS (3)
  1. MIDOL EXTENDED RELIEF CAPLETS [Suspect]
     Indication: FIBROMYALGIA
  2. IBUPROFEN [Suspect]
  3. NAPROXEN (ALEVE) [Suspect]
     Indication: FIBROMYALGIA

REACTIONS (1)
  - DRUG INEFFECTIVE [None]
